FAERS Safety Report 9215453 (Version 1)
Quarter: 2013Q2

REPORT INFORMATION
  Report Type: Spontaneous
  Country: JP (occurrence: JP)
  Receive Date: 20130405
  Receipt Date: 20130405
  Transmission Date: 20140414
  Serious: Yes (Hospitalization)
  Sender: FDA-Public Use
  Company Number: JP-009507513-1304JPN002436

PATIENT
  Age: 50 Year
  Sex: Male

DRUGS (2)
  1. JANUVIA TABLETS 25MG [Suspect]
     Dosage: DOSAGE IS UNCERTAIN DURING DAY.U
     Route: 048
  2. MYSLEE [Concomitant]
     Dosage: DOSAGE IS UNCERTAIN DURING A DAY, FORMULATION:POR
     Route: 048

REACTIONS (1)
  - Inappropriate antidiuretic hormone secretion [Unknown]
